FAERS Safety Report 16534783 (Version 2)
Quarter: 2019Q3

REPORT INFORMATION
  Report Type: Spontaneous
  Country: JP (occurrence: JP)
  Receive Date: 20190705
  Receipt Date: 20190930
  Transmission Date: 20191004
  Serious: Yes (Hospitalization)
  Sender: FDA-Public Use
  Company Number: JP-ASTELLAS-2019JP013308

PATIENT
  Age: 66 Year

DRUGS (1)
  1. PROGRAF [Suspect]
     Active Substance: TACROLIMUS\TACROLIMUS ANHYDROUS
     Indication: INTERSTITIAL LUNG DISEASE
     Dosage: 6 MG/DAY, UNKNOWN FREQ.
     Route: 048

REACTIONS (1)
  - Cholelithiasis [Recovered/Resolved]
